FAERS Safety Report 12403166 (Version 1)
Quarter: 2016Q2

REPORT INFORMATION
  Report Type: Spontaneous
  Country: TH (occurrence: TH)
  Receive Date: 20160525
  Receipt Date: 20160525
  Transmission Date: 20160815
  Serious: Yes (Life-Threatening, Hospitalization)
  Sender: FDA-Public Use
  Company Number: TH-GLENMARK PHARMACEUTICALS INC, USA.-2016GMK023005

PATIENT
  Age: 15 Year
  Sex: Female

DRUGS (2)
  1. SULFAMETHOXAZOLE/TRIMETHOPRIM TABLETS [Suspect]
     Active Substance: SULFAMETHOXAZOLE\TRIMETHOPRIM
     Indication: ACNE
     Dosage: 2 DF, QD
     Route: 065
     Dates: start: 20131212, end: 20140217
  2. ROACUTANE [Concomitant]
     Indication: ACNE
     Dosage: 1 DF, OD
     Route: 065
     Dates: start: 20140214, end: 20140217

REACTIONS (1)
  - Drug reaction with eosinophilia and systemic symptoms [Recovered/Resolved]

NARRATIVE: CASE EVENT DATE: 20140215
